FAERS Safety Report 7513086-2 (Version None)
Quarter: 2011Q2

REPORT INFORMATION
  Report Type: 
  Country: None (occurrence: None)
  Receive Date: 20110531
  Receipt Date: 20110525
  Transmission Date: 20111010
  Serious: Yes (Hospitalization, Other)
  Sender: FDA-Public Use
  Company Number: GB-PFIZER INC-2011112711

PATIENT
  Age: 71 Year
  Sex: Female

DRUGS (1)
  1. ALDACTONE [Suspect]

REACTIONS (2)
  - DELUSION [None]
  - PSYCHOTIC DISORDER [None]
